FAERS Safety Report 7287888-4 (Version None)
Quarter: 2011Q1

REPORT INFORMATION
  Report Type: 
  Country: None (occurrence: None)
  Receive Date: 20110211
  Receipt Date: 20101213
  Transmission Date: 20110831
  Serious: No
  Sender: FDA-Public Use
  Company Number: A0899549A

PATIENT
  Age: 38 Year
  Sex: Male

DRUGS (4)
  1. CALCIUM SUPPLEMENT [Concomitant]
  2. TREXIMET [Suspect]
     Indication: MIGRAINE
     Dosage: 1TAB AS REQUIRED
     Route: 048
     Dates: start: 20091201, end: 20100910
  3. VITAMIN D [Concomitant]
  4. MULTI-VITAMIN [Concomitant]

REACTIONS (2)
  - ODYNOPHAGIA [None]
  - ABDOMINAL PAIN UPPER [None]
